FAERS Safety Report 7682106-7 (Version None)
Quarter: 2011Q3

REPORT INFORMATION
  Report Type: 
  Country: None (occurrence: None)
  Receive Date: 20110805
  Receipt Date: 20090929
  Transmission Date: 20111222
  Serious: Yes (Other)
  Sender: FDA-Public Use
  Company Number: 2009SP027742

PATIENT
  Age: 23 Year
  Sex: Female

DRUGS (3)
  1. DESLORATADINE [Suspect]
     Dates: start: 20060101, end: 20060101
  2. NASACORT [Suspect]
     Indication: PRODUCT USED FOR UNKNOWN INDICATION
     Dates: start: 20060101, end: 20060101
  3. NASONEX [Suspect]
     Dates: start: 20060101, end: 20060101

REACTIONS (2)
  - HALLUCINATION [None]
  - MENTAL DISORDER [None]
